FAERS Safety Report 9193223 (Version 2)
Quarter: 2013Q2

REPORT INFORMATION
  Report Type: Spontaneous
  Country: US (occurrence: US)
  Receive Date: 20130327
  Receipt Date: 20130619
  Transmission Date: 20140414
  Serious: No
  Sender: FDA-Public Use
  Company Number: US-009507513-1303USA012833

PATIENT
  Sex: Male
  Weight: 81.63 kg

DRUGS (3)
  1. MIRALAX [Suspect]
     Indication: CONSTIPATION
     Dosage: 17 G, TID
     Route: 048
  2. AVAPRO [Concomitant]
     Indication: HYPERTENSION
     Route: 048
  3. VERAPAMIL [Concomitant]
     Indication: HYPERTENSION

REACTIONS (2)
  - Overdose [Unknown]
  - Inappropriate schedule of drug administration [Unknown]
